FAERS Safety Report 12717430 (Version 1)
Quarter: 2016Q3

REPORT INFORMATION
  Report Type: Spontaneous
  Country: JP (occurrence: JP)
  Receive Date: 20160906
  Receipt Date: 20160906
  Transmission Date: 20161109
  Serious: Yes (Hospitalization, Other)
  Sender: FDA-Public Use
  Company Number: JP-GLAXOSMITHKLINE-JP2016JPN125233

PATIENT
  Age: 30 Year
  Sex: Female

DRUGS (15)
  1. AMINOPHYLLINE HYDRATE [Suspect]
     Active Substance: AMINOPHYLLINE
     Dosage: 500 MG, 1D
     Route: 065
  2. METHYLPREDNISOLONE. [Suspect]
     Active Substance: METHYLPREDNISOLONE
     Dosage: 160 MG, 1D
  3. DEXAMETHASONE. [Suspect]
     Active Substance: DEXAMETHASONE
     Dosage: 32 MG, 1D
     Route: 065
  4. VENTOLINE [Suspect]
     Active Substance: ALBUTEROL
     Dosage: UNK
     Route: 055
  5. AZITHROMYCIN HYDRATE [Suspect]
     Active Substance: AZITHROMYCIN DIHYDRATE
     Dosage: 500 MG, 1D
     Route: 048
  6. PREDNISOLONE. [Suspect]
     Active Substance: PREDNISOLONE
     Dosage: 20 MG, 1D
     Route: 048
  7. D-CHLORPHENIRAMINE MALEATE [Suspect]
     Active Substance: DEXCHLORPHENIRAMINE MALEATE
     Dosage: 6 MG, 1D
     Route: 048
  8. METHYLPREDNISOLONE. [Suspect]
     Active Substance: METHYLPREDNISOLONE
     Dosage: 240 MG, 1D
  9. PREDNISOLONE. [Suspect]
     Active Substance: PREDNISOLONE
     Dosage: 10 MG, 1D
  10. METHYLPREDNISOLONE. [Suspect]
     Active Substance: METHYLPREDNISOLONE
     Dosage: 320 MG, 1D
     Route: 041
  11. MAGNESIUM SULFATE HYDRATE [Suspect]
     Active Substance: MAGNESIUM SULFATE HEPTAHYDRATE
     Dosage: 2.46 G, 1D
     Route: 065
  12. MONTELUKAST SODIUM. [Suspect]
     Active Substance: MONTELUKAST SODIUM
     Dosage: 10 MG, 1D
     Route: 048
  13. MEROPENEM HYDRATE [Suspect]
     Active Substance: MEROPENEM
     Dosage: 3 G, 1D
     Route: 041
  14. METHYLPREDNISOLONE. [Suspect]
     Active Substance: METHYLPREDNISOLONE
     Dosage: 80 MG, 1D
  15. PREDNISOLONE. [Suspect]
     Active Substance: PREDNISOLONE
     Dosage: 5 MG, 1D

REACTIONS (9)
  - Pyrexia [Recovering/Resolving]
  - Tachypnoea [Recovering/Resolving]
  - Sputum purulent [Recovering/Resolving]
  - Atelectasis [Recovering/Resolving]
  - Pneumonia [Recovering/Resolving]
  - Wheezing [Recovering/Resolving]
  - Live birth [Unknown]
  - Asthma [Recovering/Resolving]
  - Exposure during pregnancy [Unknown]
